FAERS Safety Report 18351294 (Version 2)
Quarter: 2020Q4

REPORT INFORMATION
  Report Type: Report from Study
  Country: IT (occurrence: IT)
  Receive Date: 20201006
  Receipt Date: 20201008
  Transmission Date: 20210114
  Serious: Yes (Other)
  Sender: FDA-Public Use
  Company Number: IT-MYLANLABS-2020M1084360

PATIENT
  Age: 88 Year
  Sex: Male

DRUGS (10)
  1. OXYBUTYNIN HYDROCHLORIDE [Concomitant]
     Active Substance: OXYBUTYNIN CHLORIDE
     Dosage: 5 MILLIGRAM, QD
  2. ATORVASTATIN [Concomitant]
     Active Substance: ATORVASTATIN
     Dosage: 20 MILLIGRAM, QD
  3. ZOLPIDEM [Suspect]
     Active Substance: ZOLPIDEM TARTRATE
     Indication: INSOMNIA
     Dosage: 1 DOSAGE FORM, TOTAL
     Route: 048
     Dates: start: 20200731, end: 20200731
  4. THEOPHYLLINE [Concomitant]
     Active Substance: THEOPHYLLINE ANHYDROUS
     Dosage: 200 MILLIGRAM, QD
  5. INDAPAMIDE. [Concomitant]
     Active Substance: INDAPAMIDE
     Dosage: 2.5 MILLIGRAM, QD
  6. METFORMIN [Concomitant]
     Active Substance: METFORMIN HYDROCHLORIDE
     Dosage: 850 MILLIGRAM, QD
  7. LINAGLIPTIN [Concomitant]
     Active Substance: LINAGLIPTIN
     Dosage: 2.5 MILLIGRAM, QD
  8. SOTALOL. [Suspect]
     Active Substance: SOTALOL
     Indication: ARRHYTHMIA
     Dosage: 80 MILLIGRAM, QD
     Route: 048
     Dates: start: 20190731, end: 20200731
  9. MADOPAR [Concomitant]
     Active Substance: BENSERAZIDE HYDROCHLORIDE\LEVODOPA
     Dosage: UNK
  10. PERINDOPRIL [Concomitant]
     Active Substance: PERINDOPRIL
     Dosage: 10 MILLIGRAM, QD

REACTIONS (2)
  - Syncope [Recovering/Resolving]
  - Fall [Recovering/Resolving]

NARRATIVE: CASE EVENT DATE: 20200731
